FAERS Safety Report 4469486-0 (Version None)
Quarter: 2004Q4

REPORT INFORMATION
  Report Type: 
  Country: None (occurrence: None)
  Receive Date: 20041005
  Receipt Date: 20040921
  Transmission Date: 20050328
  Serious: Yes (Congenital Anomaly)
  Sender: FDA-Public Use
  Company Number: A03200403009

PATIENT
  Age: 1 Day

DRUGS (7)
  1. AMBIEN [Suspect]
     Dosage: 20 MG HS - TRANSPLACENTAL
     Route: 064
     Dates: start: 20031201, end: 20031229
  2. EFFEXOR XR [Suspect]
     Dosage: 450 MG QD - TRANSPLACENTAL
     Route: 064
     Dates: start: 20031201, end: 20040716
  3. MIRTAZAPINE [Concomitant]
  4. ARIPIPRAZOLE [Concomitant]
  5. TIAGABINE HYDROCHLORIDE [Concomitant]
  6. CLONAZEPAM [Concomitant]
  7. LORAZEPAM [Concomitant]

REACTIONS (5)
  - CAESAREAN SECTION [None]
  - CONGENITAL BLADDER ANOMALY [None]
  - DRUG EXPOSURE DURING PREGNANCY [None]
  - MENINGOCELE [None]
  - PREMATURE BABY [None]
